FAERS Safety Report 4575887-2 (Version None)
Quarter: 2005Q1

REPORT INFORMATION
  Report Type: 
  Country: None (occurrence: None)
  Receive Date: 20050204
  Receipt Date: 20050120
  Transmission Date: 20050727
  Serious: Yes (Hospitalization)
  Sender: FDA-Public Use
  Company Number: 2004222820MY

PATIENT
  Sex: Male

DRUGS (3)
  1. BEXTRA [Suspect]
     Indication: SCIATICA
     Dosage: 400 MG (1 IN 1 D), ORAL
     Route: 048
     Dates: start: 20040621, end: 20040630
  2. DIOSMIN           (DISOMIN) [Suspect]
     Indication: HAEMORRHOIDAL HAEMORRHAGE
     Dosage: 500 MG, ORAL
     Route: 048
     Dates: start: 20040626
  3. ISPAGHULA (ISPAGHULA) [Concomitant]

REACTIONS (2)
  - ERYTHEMA MULTIFORME [None]
  - HAEMORRHOIDAL HAEMORRHAGE [None]
